FAERS Safety Report 23149991 (Version 3)
Quarter: 2023Q4

REPORT INFORMATION
  Report Type: Spontaneous
  Country: US (occurrence: US)
  Receive Date: 20231106
  Receipt Date: 20231207
  Transmission Date: 20240110
  Serious: No
  Sender: FDA-Public Use
  Company Number: US-PFIZER INC-202300348238

PATIENT
  Age: 44 Year
  Sex: Female

DRUGS (3)
  1. XELJANZ XR [Interacting]
     Active Substance: TOFACITINIB CITRATE
     Indication: Multiple sclerosis
     Dosage: 11 MG, 1X/DAY
     Route: 048
  2. OCREVUS [Interacting]
     Active Substance: OCRELIZUMAB
  3. BUTALBITAL [Interacting]
     Active Substance: BUTALBITAL

REACTIONS (2)
  - Drug interaction [Unknown]
  - Off label use [Unknown]
